FAERS Safety Report 4767264-6 (Version None)
Quarter: 2005Q3

REPORT INFORMATION
  Report Type: 
  Country: None (occurrence: None)
  Receive Date: 20050906
  Receipt Date: 20050504
  Transmission Date: 20060218
  Serious: No
  Sender: FDA-Public Use
  Company Number: 2005-BP-07498BP

PATIENT
  Age: 71 Year
  Sex: Female

DRUGS (6)
  1. SPIRIVA [Suspect]
     Indication: CHRONIC OBSTRUCTIVE PULMONARY DISEASE
     Dosage: 18 MCG (18 MCG, QD), IH
     Route: 055
     Dates: start: 20050315
  2. BUSPIRONE HCL [Suspect]
     Indication: ANXIETY
     Dosage: PO
     Route: 048
     Dates: start: 20050415
  3. EYE GIRL FORMING SOLUTION [Concomitant]
  4. ZYMAR (GATIFLOXACIN) [Concomitant]
  5. PREDNISONE [Concomitant]
  6. XOPENEX [Concomitant]

REACTIONS (1)
  - ALOPECIA [None]
